FAERS Safety Report 21555281 (Version 1)
Quarter: 2022Q4

REPORT INFORMATION
  Report Type: Spontaneous
  Country: JP (occurrence: JP)
  Receive Date: 20221104
  Receipt Date: 20221104
  Transmission Date: 20230112
  Serious: Yes (Other)
  Sender: FDA-Public Use
  Company Number: JP-SUN PHARMACEUTICAL INDUSTRIES LTD-2022RR-361421

PATIENT
  Age: 7 Decade
  Sex: Female

DRUGS (7)
  1. GEMCITABINE [Suspect]
     Active Substance: GEMCITABINE
     Indication: Endometrial stromal sarcoma
     Dosage: 900 MILLIGRAM/SQ. METER ON DAYS 1 AND 8 EVERY 21 DAYS
     Route: 065
  2. DOXORUBICIN [Suspect]
     Active Substance: DOXORUBICIN
     Indication: Endometrial stromal sarcoma
     Dosage: 60 MILLIGRAM/SQ. METER DAY 1 EVERY 21 DAYS
     Route: 065
  3. CISPLATIN [Suspect]
     Active Substance: CISPLATIN
     Indication: Endometrial stromal sarcoma
     Dosage: 40 MILLIGRAM/SQ. METER 1 EVERY 21 DAYS
     Route: 065
  4. DOCETAXEL [Suspect]
     Active Substance: DOCETAXEL
     Indication: Endometrial stromal sarcoma
     Dosage: 70 MILLIGRAM/SQ. METER ON DAY 8 EVERY 21 DAYS
     Route: 065
  5. PACLITAXEL [Suspect]
     Active Substance: PACLITAXEL
     Indication: Endometrial stromal sarcoma
     Dosage: 175 MILLIGRAM/SQ. METER 1 EVERY 21-28 DAYS
     Route: 065
  6. CARBOPLATIN [Suspect]
     Active Substance: CARBOPLATIN
     Indication: Endometrial stromal sarcoma
     Dosage: AREA UNDER THE CONCENTRATION-TIME CURVE 5 DAY 1, EVERY 21-28 DAYS
     Route: 065
  7. ERIBULIN [Suspect]
     Active Substance: ERIBULIN
     Indication: Endometrial stromal sarcoma
     Dosage: 1.4 MILLIGRAM/SQ. METER ON DAYS 1 AND 8 EVERY 21 DAYS
     Route: 065

REACTIONS (4)
  - Disease recurrence [Unknown]
  - Disease progression [Unknown]
  - Fatigue [Unknown]
  - Therapeutic product effect incomplete [Unknown]
